FAERS Safety Report 8942369 (Version 2)
Quarter: 2012Q4

REPORT INFORMATION
  Report Type: Spontaneous
  Country: US (occurrence: None)
  Receive Date: 20121121
  Receipt Date: 20121121
  Transmission Date: 20130627
  Serious: Yes (Life-Threatening)
  Sender: FDA-Public Use
  Company Number: 2012S1001526

PATIENT
  Age: 68 Year
  Sex: Female

DRUGS (1)
  1. LIVALO (PITAVASTATIN) TABLETS 2 MG [Suspect]
     Route: 048

REACTIONS (4)
  - Ammonia increased [None]
  - Renal impairment [None]
  - Hepatic function abnormal [None]
  - Breath odour [None]
